FAERS Safety Report 12445206 (Version 1)
Quarter: 2016Q2

REPORT INFORMATION
  Report Type: Spontaneous
  Country: US (occurrence: US)
  Receive Date: 20160607
  Receipt Date: 20160607
  Transmission Date: 20160815
  Serious: No
  Sender: FDA-Public Use
  Company Number: US-ELI_LILLY_AND_COMPANY-US201606000794

PATIENT
  Sex: Male

DRUGS (1)
  1. HUMALOG [Suspect]
     Active Substance: INSULIN LISPRO
     Indication: TYPE 2 DIABETES MELLITUS
     Dosage: UNK, TID
     Route: 065
     Dates: start: 2011

REACTIONS (9)
  - Glycosylated haemoglobin increased [Unknown]
  - Presyncope [Unknown]
  - Blood glucose increased [Unknown]
  - Appetite disorder [Unknown]
  - Weight abnormal [Unknown]
  - Visual impairment [Unknown]
  - Blood glucose decreased [Unknown]
  - Incorrect dosage administered [Unknown]
  - Drug dose omission [Unknown]
